FAERS Safety Report 8305153-0 (Version None)
Quarter: 2012Q2

REPORT INFORMATION
  Report Type: 
  Country: None (occurrence: None)
  Receive Date: 20120423
  Receipt Date: 20120412
  Transmission Date: 20120825
  Serious: Yes (Hospitalization, Other)
  Sender: FDA-Public Use
  Company Number: US-ASTRAZENECA-2012SE08480

PATIENT
  Age: 73 Year
  Sex: Female

DRUGS (2)
  1. FLEXPEN INSULIN [Concomitant]
  2. SYMBICORT [Suspect]
     Route: 055

REACTIONS (7)
  - COLON CANCER [None]
  - DIABETES MELLITUS [None]
  - NEOPLASM MALIGNANT [None]
  - PNEUMONIA [None]
  - BLADDER CANCER [None]
  - RENAL CANCER [None]
  - DIVERTICULITIS [None]
